FAERS Safety Report 5802117-3 (Version None)
Quarter: 2008Q3

REPORT INFORMATION
  Report Type: 
  Country: None (occurrence: None)
  Receive Date: 20080707
  Receipt Date: 20080703
  Transmission Date: 20090109
  Serious: Yes (Death)
  Sender: FDA-Public Use
  Company Number: PHHY2008IN12367

PATIENT
  Age: 52 Year
  Sex: Female

DRUGS (1)
  1. ASUNRA [Suspect]
     Dosage: 400 MG/DAY
     Route: 048

REACTIONS (1)
  - CONVULSION [None]
